FAERS Safety Report 13622144 (Version 1)
Quarter: 2017Q2

REPORT INFORMATION
  Report Type: Spontaneous
  Country: US (occurrence: US)
  Receive Date: 20170607
  Receipt Date: 20170607
  Transmission Date: 20170830
  Serious: No
  Sender: FDA-Public Use
  Company Number: US-ROCHE-1888194

PATIENT
  Age: 80 Year
  Sex: Male
  Weight: 70.37 kg

DRUGS (2)
  1. XELODA [Suspect]
     Active Substance: CAPECITABINE
     Indication: NEOPLASM MALIGNANT
     Dosage: 3 PILLS TWICE A DAY
     Route: 065
     Dates: start: 201701, end: 201701
  2. XELODA [Suspect]
     Active Substance: CAPECITABINE
     Dosage: 3 PILLS TWICE A DAY
     Route: 065
     Dates: start: 20170128

REACTIONS (1)
  - Rash [Recovered/Resolved]

NARRATIVE: CASE EVENT DATE: 201701
